FAERS Safety Report 6500081-5 (Version None)
Quarter: 2009Q4

REPORT INFORMATION
  Report Type: 
  Country: None (occurrence: None)
  Receive Date: 20091214
  Receipt Date: 20091214
  Transmission Date: 20100525
  Serious: Yes (Death)
  Sender: FDA-Public Use
  Company Number: None

PATIENT
  Age: 83 Year
  Sex: Female
  Weight: 72.7 kg

DRUGS (1)
  1. JANUVIA [Suspect]

REACTIONS (2)
  - DRUG INEFFECTIVE [None]
  - PANCREATITIS ACUTE [None]
